FAERS Safety Report 17355634 (Version 2)
Quarter: 2020Q2

REPORT INFORMATION
  Report Type: Report from Study
  Country: US (occurrence: US)
  Receive Date: 20200131
  Receipt Date: 20200414
  Transmission Date: 20200713
  Serious: Yes (Hospitalization)
  Sender: FDA-Public Use
  Company Number: US-GILEAD-2019-0441570

PATIENT
  Age: 48 Year
  Sex: Female
  Weight: 104.76 kg

DRUGS (8)
  1. ZAROXOLYN [Concomitant]
     Active Substance: METOLAZONE
     Indication: PULMONARY HYPERTENSION
     Dosage: 5 MG, Q3WK
     Route: 048
  2. K-DUR [Concomitant]
     Active Substance: POTASSIUM CHLORIDE
     Indication: PULMONARY HYPERTENSION
     Dosage: 750 MG, BID
     Route: 048
  3. DEMADEX [Concomitant]
     Active Substance: TORSEMIDE
     Indication: PULMONARY HYPERTENSION
     Dosage: 60 MG, QD
     Route: 048
  4. ZOTRAN [Concomitant]
     Active Substance: ALPRAZOLAM
     Indication: PULMONARY HYPERTENSION
     Dosage: 4 MG, Q8H
     Route: 048
  5. AMBRISENTAN [Suspect]
     Active Substance: AMBRISENTAN
     Indication: PULMONARY HYPERTENSION
     Dosage: 5 MG, QD
     Route: 048
     Dates: start: 20190615, end: 20191205
  6. ORENITRAM [Concomitant]
     Active Substance: TREPROSTINIL
     Indication: PULMONARY HYPERTENSION
     Dosage: 0.5 MG, Q8H
     Route: 048
  7. PROTONIX [OMEPRAZOLE] [Concomitant]
     Active Substance: OMEPRAZOLE
     Indication: PULMONARY HYPERTENSION
     Dosage: 40 MG, QD
     Route: 048
  8. AMBRISENTAN [Suspect]
     Active Substance: AMBRISENTAN
     Dosage: 10 MG
     Route: 048
     Dates: end: 20191213

REACTIONS (3)
  - Dyspnoea [Recovered/Resolved]
  - Fluid overload [Recovered/Resolved]
  - Oedema [Recovered/Resolved]

NARRATIVE: CASE EVENT DATE: 20191018
